FAERS Safety Report 17890063 (Version 1)
Quarter: 2020Q2

REPORT INFORMATION
  Report Type: Spontaneous
  Country: US (occurrence: US)
  Receive Date: 20200612
  Receipt Date: 20200612
  Transmission Date: 20200714
  Serious: No
  Sender: FDA-Public Use
  Company Number: US-GRANULES INDIA LIMITED-2085720

PATIENT
  Age: 32 Year
  Sex: Female

DRUGS (1)
  1. ACETAMINOPHEN. [Suspect]
     Active Substance: ACETAMINOPHEN
     Indication: HEADACHE
     Route: 065
     Dates: start: 20200503, end: 20200514

REACTIONS (15)
  - Oropharyngeal pain [Recovering/Resolving]
  - Malaise [Recovered/Resolved]
  - Feeling hot [Recovering/Resolving]
  - Feeling abnormal [Recovering/Resolving]
  - Pharyngeal swelling [Recovering/Resolving]
  - Blister [Recovering/Resolving]
  - Skin burning sensation [Recovering/Resolving]
  - Nausea [Recovering/Resolving]
  - Headache [Recovering/Resolving]
  - Flushing [Recovering/Resolving]
  - Pyrexia [Recovering/Resolving]
  - Condition aggravated [Recovering/Resolving]
  - Vomiting [Recovering/Resolving]
  - Hypersensitivity [Recovering/Resolving]
  - Abdominal discomfort [Recovering/Resolving]

NARRATIVE: CASE EVENT DATE: 202005
